FAERS Safety Report 14967169 (Version 1)
Quarter: 2018Q2

REPORT INFORMATION
  Report Type: Spontaneous
  Country: JP (occurrence: JP)
  Receive Date: 20180604
  Receipt Date: 20180604
  Transmission Date: 20180711
  Serious: Yes (Other)
  Sender: FDA-Public Use
  Company Number: JP-CHEPLA-C20170377

PATIENT
  Sex: Female

DRUGS (1)
  1. VESANOID [Suspect]
     Active Substance: TRETINOIN
     Indication: ACUTE PROMYELOCYTIC LEUKAEMIA
     Dosage: VESANOID 70MG/DAY
     Route: 048

REACTIONS (4)
  - Contraindication to medical treatment [Unknown]
  - Pregnancy [None]
  - Maternal exposure during pregnancy [None]
  - Exposure during pregnancy [Unknown]
